FAERS Safety Report 18549108 (Version 1)
Quarter: 2020Q4

REPORT INFORMATION
  Report Type: Spontaneous
  Country: US (occurrence: US)
  Receive Date: 20201126
  Receipt Date: 20201126
  Transmission Date: 20210114
  Serious: No
  Sender: FDA-Public Use
  Company Number: US-GLENMARK PHARMACEUTICALS-2020GMK049238

PATIENT

DRUGS (3)
  1. CLOBETASOL PROPIONATE CREAM USP, 0.05% [Suspect]
     Active Substance: CLOBETASOL PROPIONATE
     Indication: ARTHROPOD BITE
  2. CLOBETASOL PROPIONATE CREAM USP, 0.05% [Suspect]
     Active Substance: CLOBETASOL PROPIONATE
     Indication: WOUND
     Dosage: UNK
     Route: 061
  3. CLOBETASOL PROPIONATE CREAM USP, 0.05% [Suspect]
     Active Substance: CLOBETASOL PROPIONATE
     Indication: PAIN OF SKIN

REACTIONS (1)
  - Product use in unapproved indication [Unknown]
